FAERS Safety Report 5631103-1 (Version None)
Quarter: 2008Q1

REPORT INFORMATION
  Report Type: 
  Country: None (occurrence: None)
  Receive Date: 20080219
  Receipt Date: 20080208
  Transmission Date: 20080703
  Serious: Yes (Hospitalization)
  Sender: FDA-Public Use
  Company Number: NO-PFIZER INC-2008012199

PATIENT
  Sex: Female

DRUGS (4)
  1. ZOLOFT [Suspect]
  2. ALBYL-E [Suspect]
  3. SOBRIL [Concomitant]
  4. SERETIDE [Concomitant]
     Dosage: TEXT:25/250

REACTIONS (1)
  - CEREBELLAR HAEMORRHAGE [None]
